FAERS Safety Report 7288926-5 (Version None)
Quarter: 2011Q1

REPORT INFORMATION
  Report Type: 
  Country: None (occurrence: None)
  Receive Date: 20110211
  Receipt Date: 20110203
  Transmission Date: 20110831
  Serious: Yes (Other)
  Sender: FDA-Public Use
  Company Number: PHEH2007US03361

PATIENT
  Sex: Female
  Weight: 63.492 kg

DRUGS (11)
  1. WELLBUTRIN [Concomitant]
  2. ZOMETA [Suspect]
  3. LEXAPRO [Concomitant]
  4. AMBIEN [Concomitant]
  5. LUPRON [Concomitant]
  6. CALCIUM [Concomitant]
  7. VICODIN [Concomitant]
  8. VITAMIN D [Concomitant]
  9. FEMARA [Concomitant]
  10. EFFEXOR XR [Concomitant]
     Dosage: UNK
     Dates: start: 20070925
  11. EFFEXOR [Concomitant]
     Dosage: UNK
     Dates: end: 20070924

REACTIONS (37)
  - DENTAL CARIES [None]
  - ANXIETY [None]
  - METASTASES TO BONE [None]
  - DEPRESSION [None]
  - PLEURAL EFFUSION [None]
  - POLLAKIURIA [None]
  - NOCTURIA [None]
  - DECREASED INTEREST [None]
  - LYMPH NODE CANCER METASTATIC [None]
  - ALOPECIA [None]
  - LYMPHADENOPATHY [None]
  - LUNG INFILTRATION [None]
  - OVARIAN CYST [None]
  - GINGIVAL EROSION [None]
  - OSTEONECROSIS OF JAW [None]
  - PARANEOPLASTIC SYNDROME [None]
  - ASPIRATION PLEURAL CAVITY [None]
  - HEADACHE [None]
  - EPISTAXIS [None]
  - TOOTHACHE [None]
  - INJURY [None]
  - PAIN IN EXTREMITY [None]
  - ATELECTASIS [None]
  - SPINAL OSTEOARTHRITIS [None]
  - HEPATIC LESION [None]
  - HAEMANGIOMA [None]
  - BREAST CANCER METASTATIC [None]
  - BONE PAIN [None]
  - SENSITIVITY OF TEETH [None]
  - TOOTH DISORDER [None]
  - LOCAL SWELLING [None]
  - PAIN [None]
  - NEOPLASM MALIGNANT [None]
  - TUMOUR MARKER INCREASED [None]
  - BACK PAIN [None]
  - INTERVERTEBRAL DISC PROTRUSION [None]
  - BONE LESION [None]
